FAERS Safety Report 7624174-4 (Version None)
Quarter: 2011Q3

REPORT INFORMATION
  Report Type: 
  Country: None (occurrence: None)
  Receive Date: 20110720
  Receipt Date: 20110720
  Transmission Date: 20111222
  Serious: Yes (Other)
  Sender: FDA-Public Use
  Company Number: None

PATIENT
  Age: 44 Year
  Sex: Female
  Weight: 148.77 kg

DRUGS (1)
  1. PRISTIQ [Suspect]
     Indication: ANTIDEPRESSANT THERAPY
     Dosage: 50MG
     Route: 048
     Dates: start: 20110629, end: 20110715

REACTIONS (13)
  - NAUSEA [None]
  - BLOOD GLUCOSE INCREASED [None]
  - SOMNOLENCE [None]
  - RESTLESSNESS [None]
  - DIZZINESS [None]
  - INSOMNIA [None]
  - HEADACHE [None]
  - VISUAL IMPAIRMENT [None]
  - HYPERTENSION [None]
  - PALPITATIONS [None]
  - VOMITING [None]
  - ABDOMINAL PAIN UPPER [None]
  - AGITATION [None]
